FAERS Safety Report 20015872 (Version 1)
Quarter: 2021Q4

REPORT INFORMATION
  Report Type: Spontaneous
  Country: US (occurrence: None)
  Receive Date: 20211101
  Receipt Date: 20211101
  Transmission Date: 20220303
  Serious: No
  Sender: FDA-Public Use
  Company Number: None

PATIENT
  Age: 36 Year
  Sex: Female

DRUGS (9)
  1. OTEZLA [Suspect]
     Active Substance: APREMILAST
     Indication: Psoriasis
     Route: 048
     Dates: start: 20211029
  2. calcipotrein [Concomitant]
  3. CLOBETASOL [Concomitant]
     Active Substance: CLOBETASOL
  4. EPIDUO FORTE [Concomitant]
     Active Substance: ADAPALENE\BENZOYL PEROXIDE
  5. FOLIC ACID [Concomitant]
     Active Substance: FOLIC ACID
  6. ketocon azole [Concomitant]
  7. METHOTREXATE [Concomitant]
     Active Substance: METHOTREXATE
  8. NEXPLANON [Concomitant]
     Active Substance: ETONOGESTREL
  9. OTEZLA [Concomitant]
     Active Substance: APREMILAST

REACTIONS (2)
  - Gastrointestinal disorder [None]
  - Therapy interrupted [None]

NARRATIVE: CASE EVENT DATE: 20211029
